FAERS Safety Report 25015868 (Version 1)
Quarter: 2025Q1

REPORT INFORMATION
  Report Type: Spontaneous
  Country: US (occurrence: US)
  Receive Date: 20250227
  Receipt Date: 20250227
  Transmission Date: 20250408
  Serious: No
  Sender: AMNEAL
  Company Number: US-AMNEAL PHARMACEUTICALS-2024-AMRX-04685

PATIENT
  Age: 85 Year
  Sex: Female

DRUGS (1)
  1. CREXONT [Suspect]
     Active Substance: CARBIDOPA\LEVODOPA
     Indication: Parkinson^s disease
     Dosage: 1 DOSAGE FORM, 3X/DAY
     Route: 048

REACTIONS (2)
  - Brain fog [Unknown]
  - Nausea [Unknown]

NARRATIVE: CASE EVENT DATE: 20241223
